FAERS Safety Report 24654840 (Version 1)
Quarter: 2024Q4

REPORT INFORMATION
  Report Type: Spontaneous
  Country: CA (occurrence: CA)
  Receive Date: 20241122
  Receipt Date: 20241122
  Transmission Date: 20250115
  Serious: Yes (Other)
  Sender: PURDUE
  Company Number: CA-PURDUE-USA-2024-0313476

PATIENT

DRUGS (2)
  1. HYDROMORPHONE HYDROCHLORIDE [Interacting]
     Active Substance: HYDROMORPHONE HYDROCHLORIDE
     Indication: Pain
     Dosage: UNK
     Route: 065
  2. CANNABIS SATIVA SUBSP. INDICA TOP [Interacting]
     Active Substance: CANNABIS SATIVA SUBSP. INDICA TOP
     Indication: Pain
     Dosage: UNK
     Route: 065

REACTIONS (3)
  - Cognitive disorder [Unknown]
  - Confusional state [Unknown]
  - Drug interaction [Unknown]
